FAERS Safety Report 14897323 (Version 1)
Quarter: 2018Q2

REPORT INFORMATION
  Report Type: Spontaneous
  Country: US (occurrence: US)
  Receive Date: 20180515
  Receipt Date: 20180515
  Transmission Date: 20180711
  Serious: Yes (Other)
  Sender: FDA-Public Use
  Company Number: US-NAPPMUNDI-USA-2018-0143578

PATIENT
  Age: 55 Year
  Sex: Male

DRUGS (1)
  1. BUPRENORPHINE (SIMILAR TO NDA 21-306) [Suspect]
     Active Substance: BUPRENORPHINE
     Indication: PAIN
     Dosage: UNK, WEEKLY
     Route: 062
     Dates: start: 20180430, end: 20180510

REACTIONS (7)
  - Palpitations [Recovering/Resolving]
  - Tinnitus [Recovering/Resolving]
  - Muscular weakness [Recovering/Resolving]
  - Visual field defect [Recovering/Resolving]
  - Insomnia [Recovering/Resolving]
  - Anxiety [Recovering/Resolving]
  - Blood pressure increased [Recovering/Resolving]

NARRATIVE: CASE EVENT DATE: 20180502
